FAERS Safety Report 21691945 (Version 2)
Quarter: 2024Q2

REPORT INFORMATION
  Report Type: Report from Study
  Country: NL (occurrence: NL)
  Receive Date: 20221207
  Receipt Date: 20240402
  Transmission Date: 20240716
  Serious: Yes (Death, Life-Threatening, Hospitalization, Other)
  Sender: FDA-Public Use
  Company Number: NL-MYLANLABS-2022M1133850

PATIENT
  Age: 80 Year
  Sex: Male

DRUGS (2)
  1. CREON [Suspect]
     Active Substance: PANCRELIPASE AMYLASE\PANCRELIPASE LIPASE\PANCRELIPASE PROTEASE
     Indication: Pancreatic carcinoma
     Route: 048
     Dates: start: 20221121
  2. CREON [Suspect]
     Active Substance: PANCRELIPASE AMYLASE\PANCRELIPASE LIPASE\PANCRELIPASE PROTEASE
     Indication: Pancreatic carcinoma
     Dosage: UNK 25,000, ?LAST ADMIN DATE : NOV 2022
     Route: 048
     Dates: start: 20221114

REACTIONS (8)
  - Death [Fatal]
  - Infection [Recovering/Resolving]
  - Hospitalisation [Unknown]
  - Pneumonia [Recovering/Resolving]
  - Dehydration [Recovering/Resolving]
  - Pancreatitis [Recovering/Resolving]
  - Renal impairment [Recovering/Resolving]
  - Malaise [Recovering/Resolving]

NARRATIVE: CASE EVENT DATE: 20221125
